FAERS Safety Report 8890305 (Version 1)
Quarter: 2012Q4

REPORT INFORMATION
  Report Type: 
  Country: CA (occurrence: CA)
  Receive Date: 20121106
  Receipt Date: 20121106
  Transmission Date: 20130627
  Serious: Yes (Death, Hospitalization, Other)
  Sender: FDA-Public Use
  Company Number: PHHO2005CA03290

PATIENT
  Sex: Male

DRUGS (9)
  1. SANDOSTATIN LAR (PATIENT BASIS) [Suspect]
     Indication: HEPATIC NEOPLASM MALIGNANT NON-RESECTABLE
     Dosage: 20 mg, every 4 weeks
     Dates: start: 20041104, end: 20060612
  2. SANDOSTATIN [Suspect]
     Indication: HEPATIC NEOPLASM MALIGNANT
     Route: 058
     Dates: start: 200608
  3. DIOVAN [Suspect]
  4. NOVO-GLYBURIDE [Concomitant]
  5. NOVO-METFORMIN [Concomitant]
  6. URSO [Concomitant]
  7. LACTULOSE [Concomitant]
  8. CIPROFLOXACIN [Concomitant]
  9. NOVOSPIROTON [Concomitant]

REACTIONS (22)
  - Death [Fatal]
  - Renal failure acute [Unknown]
  - Hepatic encephalopathy [Unknown]
  - Urinary tract infection [Unknown]
  - Dehydration [Unknown]
  - Encephalopathy [Unknown]
  - Slow speech [Unknown]
  - Gait disturbance [Unknown]
  - Hyporeflexia [Unknown]
  - Weight decreased [Unknown]
  - Vision blurred [Unknown]
  - Musculoskeletal chest pain [Unknown]
  - Fall [Unknown]
  - Deep vein thrombosis [Unknown]
  - Oedema peripheral [Unknown]
  - Hyperglycaemia [Unknown]
  - Confusional state [Unknown]
  - Chills [Unknown]
  - Injection site reaction [Unknown]
  - Hypoglycaemia [Unknown]
  - Fatigue [Unknown]
  - Nausea [Unknown]
